FAERS Safety Report 13245461 (Version 1)
Quarter: 2017Q1

REPORT INFORMATION
  Report Type: Spontaneous
  Country: DE (occurrence: DE)
  Receive Date: 20170217
  Receipt Date: 20170217
  Transmission Date: 20170428
  Serious: Yes (Congenital Anomaly)
  Sender: FDA-Public Use
  Company Number: DE-ASTRAZENECA-2017SE15280

PATIENT
  Age: 1 Day
  Sex: Female
  Weight: 3.7 kg

DRUGS (2)
  1. LAMOTRIGIN DURA [Suspect]
     Active Substance: LAMOTRIGINE
     Dosage: 250 MG PER DAY TO 300 MG PER DAY
     Route: 064
     Dates: start: 20151007, end: 20160712
  2. QUETIAPINE. [Suspect]
     Active Substance: QUETIAPINE
     Route: 064
     Dates: start: 20151007, end: 20160712

REACTIONS (1)
  - Congenital hydronephrosis [Not Recovered/Not Resolved]

NARRATIVE: CASE EVENT DATE: 20160712
